FAERS Safety Report 6862636-8 (Version None)
Quarter: 2010Q3

REPORT INFORMATION
  Report Type: 
  Country: None (occurrence: None)
  Receive Date: 20100721
  Receipt Date: 20100716
  Transmission Date: 20110219
  Serious: Yes (Death)
  Sender: FDA-Public Use
  Company Number: US-GILEAD-2010-0030477

PATIENT
  Sex: Male

DRUGS (9)
  1. LETAIRIS [Suspect]
     Indication: PULMONARY ARTERIAL HYPERTENSION
     Route: 048
     Dates: start: 20090430
  2. LASIX [Concomitant]
  3. PREDNISONE [Concomitant]
  4. FLOMAX [Concomitant]
  5. CARVEDILOL [Concomitant]
  6. NORVASC [Concomitant]
  7. GLIPIZIDE [Concomitant]
  8. ALLOPURINOL [Concomitant]
  9. PROCRIT [Concomitant]

REACTIONS (1)
  - DEATH [None]
